FAERS Safety Report 6202940-X (Version None)
Quarter: 2009Q2

REPORT INFORMATION
  Report Type: 
  Country: None (occurrence: None)
  Receive Date: 20090526
  Receipt Date: 20090519
  Transmission Date: 20091009
  Serious: Yes (Hospitalization)
  Sender: FDA-Public Use
  Company Number: JP-GENENTECH-281939

PATIENT
  Sex: Male

DRUGS (6)
  1. RITUXIMAB [Suspect]
     Indication: LYMPHOMA
     Dosage: 750 MG, Q3W
     Route: 042
     Dates: start: 20090224
  2. ONCOVIN [Suspect]
     Indication: LYMPHOMA
     Dosage: 2 MG, UNK
     Route: 042
     Dates: start: 20090225
  3. ADRIACIN [Concomitant]
     Indication: LYMPHOMA
     Dosage: 100 MG, UNK
     Route: 042
     Dates: start: 20090225
  4. CYCLOPHOSPHAMIDE [Concomitant]
     Indication: LYMPHOMA
     Dosage: 1.5 G, UNK
     Route: 042
     Dates: start: 20090225, end: 20090318
  5. PREDNISOLONE [Concomitant]
     Indication: LYMPHOMA
     Dosage: UNK
     Route: 048
     Dates: start: 20090225, end: 20090322
  6. METHYLPREDNISOLONE SODIUM SUCCINATE [Concomitant]
     Indication: HYPERSENSITIVITY
     Dosage: 125 MG, UNK
     Route: 042
     Dates: start: 20090224, end: 20090407

REACTIONS (1)
  - ILEUS [None]
